FAERS Safety Report 6212551-8 (Version None)
Quarter: 2009Q2

REPORT INFORMATION
  Report Type: 
  Country: None (occurrence: None)
  Receive Date: 20090602
  Receipt Date: 20090602
  Transmission Date: 20091009
  Serious: Yes (Other)
  Sender: FDA-Public Use
  Company Number: None

PATIENT
  Sex: Female

DRUGS (5)
  1. METFORMIN HCL [Suspect]
     Indication: DIABETES MELLITUS
     Dosage: 500MG TWICE PO DAILY
     Route: 048
     Dates: start: 20081101, end: 20090101
  2. METOPROLOL SUCCINATE [Concomitant]
  3. CELEXA [Concomitant]
  4. NEXIUM [Concomitant]
  5. VICODIN [Concomitant]

REACTIONS (2)
  - DIZZINESS [None]
  - DRUG INTOLERANCE [None]
